FAERS Safety Report 5030226-8 (Version None)
Quarter: 2006Q2

REPORT INFORMATION
  Report Type: 
  Country: None (occurrence: None)
  Receive Date: 20060615
  Receipt Date: 20060531
  Transmission Date: 20061013
  Serious: Yes (Hospitalization)
  Sender: FDA-Public Use
  Company Number: ABILS-06-0281

PATIENT
  Age: 66 Year
  Sex: Male

DRUGS (4)
  1. ABRAXANE [Suspect]
     Indication: BREAST CANCER METASTATIC
     Dosage: (175 MG/M2, 1 IN 3 WEEKS) INTRAVENOUS DRIP
     Route: 041
     Dates: start: 20060407, end: 20060425
  2. PROCRIT [Suspect]
     Indication: ANAEMIA OF MALIGNANT DISEASE
     Dosage: (8000 IU, 1 IN 1 WEEK) SUBUCTANEOUS
     Route: 058
     Dates: start: 20060417, end: 20060501
  3. CYTOXAN [Suspect]
     Indication: BREAST CANCER METASTATIC
     Dosage: (500 MG/M2, 1 IN 3 WEEKS) INTRAVENOUS DRIP
     Route: 041
     Dates: start: 20060405, end: 20060425
  4. ADRIAMYCIN PFS [Suspect]
     Indication: BREAST CANCER METASTATIC
     Dosage: (500 MG/M2, 1 IN 3 WEEKS) INTRAVENOUS DRIP
     Route: 041
     Dates: start: 20060405, end: 20060428

REACTIONS (5)
  - ANAEMIA [None]
  - CARDIAC FAILURE CONGESTIVE [None]
  - PULMONARY CONGESTION [None]
  - SINUS TACHYCARDIA [None]
  - SUPRAVENTRICULAR TACHYCARDIA [None]
